FAERS Safety Report 13355416 (Version 1)
Quarter: 2017Q1

REPORT INFORMATION
  Report Type: Report from Study
  Country: US (occurrence: US)
  Receive Date: 20170321
  Receipt Date: 20170321
  Transmission Date: 20170429
  Serious: Yes (Hospitalization)
  Sender: FDA-Public Use
  Company Number: US-MYLANLABS-2017M1017179

PATIENT

DRUGS (2)
  1. SILDENAFIL. [Suspect]
     Active Substance: SILDENAFIL
     Dosage: 50MG (DURING LABOUR AND DELIVERY)
     Route: 065
  2. SILDENAFIL. [Suspect]
     Active Substance: SILDENAFIL
     Indication: PULMONARY ARTERIAL HYPERTENSION
     Dosage: 25MG, (STARTED AT 6WK OF PREGNANCY, DOSE INCREASED DURING LABOUR AND DELIVERY TO 50MG)
     Route: 065

REACTIONS (4)
  - Premature delivery [Recovered/Resolved]
  - Condition aggravated [Unknown]
  - Pulmonary arterial hypertension [Unknown]
  - Maternal exposure during pregnancy [Recovered/Resolved]
